FAERS Safety Report 22054381 (Version 1)
Quarter: 2023Q1

REPORT INFORMATION
  Report Type: Spontaneous
  Country: US (occurrence: US)
  Receive Date: 20230302
  Receipt Date: 20230302
  Transmission Date: 20230418
  Serious: No
  Sender: FDA-Public Use
  Company Number: US-NOVOPROD-966627

PATIENT
  Sex: Female
  Weight: 77.11 kg

DRUGS (3)
  1. VICTOZA [Suspect]
     Active Substance: LIRAGLUTIDE
     Indication: Type 2 diabetes mellitus
     Dosage: UNK
     Route: 058
     Dates: end: 2021
  2. METHOTREXATE [Concomitant]
     Active Substance: METHOTREXATE
     Indication: Rheumatoid arthritis
  3. METHOTREXATE [Concomitant]
     Active Substance: METHOTREXATE
     Indication: Psoriasis
     Dosage: UNK
     Route: 042
     Dates: start: 2007

REACTIONS (7)
  - Asthenia [Unknown]
  - Dizziness [Unknown]
  - Lethargy [Unknown]
  - COVID-19 [Recovered/Resolved]
  - Decreased appetite [Unknown]
  - Nausea [Unknown]
  - Glycosylated haemoglobin abnormal [Recovered/Resolved]

NARRATIVE: CASE EVENT DATE: 20210301
